FAERS Safety Report 25824268 (Version 1)
Quarter: 2025Q3

REPORT INFORMATION
  Report Type: Spontaneous
  Country: US (occurrence: US)
  Receive Date: 20250919
  Receipt Date: 20250919
  Transmission Date: 20251020
  Serious: Yes (Other)
  Sender: EXELA PHARMA SCIENCES
  Company Number: US-EXELAPHARMA-2025EXLA00189

PATIENT
  Age: 38 Year
  Sex: Male

DRUGS (3)
  1. FENTANYL CITRATE [Suspect]
     Active Substance: FENTANYL CITRATE
     Indication: Drug abuse
     Route: 045
  2. COCAINE [Suspect]
     Active Substance: COCAINE
     Indication: Drug abuse
     Route: 045
  3. HEROIN [Suspect]
     Active Substance: DIAMORPHINE
     Indication: Drug abuse
     Route: 045

REACTIONS (10)
  - Respiratory acidosis [Unknown]
  - Heart rate increased [Unknown]
  - Somnolence [Unknown]
  - Respiratory depression [Unknown]
  - Miosis [Unknown]
  - Overdose [Unknown]
  - Drug abuse [Unknown]
  - Drug withdrawal syndrome [Unknown]
  - Piloerection [Unknown]
  - Restlessness [Unknown]
